FAERS Safety Report 5152646-3 (Version None)
Quarter: 2006Q4

REPORT INFORMATION
  Report Type: 
  Country: None (occurrence: None)
  Receive Date: 20061109
  Receipt Date: 20061030
  Transmission Date: 20070319
  Serious: Yes (Disabling)
  Sender: FDA-Public Use
  Company Number: OSCN-PR-0608S-0253

PATIENT
  Age: 42 Year
  Sex: Male

DRUGS (2)
  1. OMNISCAN [Suspect]
     Indication: DRUG USE FOR UNKNOWN INDICATION
     Dosage: 40 ML, SINGLE DOSE, I.V.
     Route: 042
  2. CYCLOSPORINE [Concomitant]

REACTIONS (8)
  - ABASIA [None]
  - BEDRIDDEN [None]
  - HEPATIC FAILURE [None]
  - MULTI-ORGAN FAILURE [None]
  - NEPHROGENIC FIBROSING DERMOPATHY [None]
  - OEDEMA PERIPHERAL [None]
  - POST PROCEDURAL COMPLICATION [None]
  - SKIN ULCER [None]
